FAERS Safety Report 10038265 (Version 1)
Quarter: 2014Q1

REPORT INFORMATION
  Report Type: Spontaneous
  Country: US (occurrence: None)
  Receive Date: 20140306
  Receipt Date: 20140306
  Transmission Date: 20141002
  Serious: Yes (Disabling, Other)
  Sender: FDA-Public Use
  Company Number: 163-21880-13105701

PATIENT
  Age: 64 Year
  Sex: Female

DRUGS (15)
  1. REVLIMID [Suspect]
     Indication: PLASMA CELL MYELOMA
     Route: 048
     Dates: start: 201009
  2. COLACE [Concomitant]
  3. COMPAZINE [Concomitant]
  4. CYMBALTA [Concomitant]
  5. DILAUDID [Concomitant]
  6. GABAPENTIN [Concomitant]
  7. IMODIUM [Concomitant]
  8. KLOR-CON [Concomitant]
  9. OXYCODONE [Concomitant]
  10. OXYGEN [Concomitant]
  11. PREDNISONE [Concomitant]
  12. PRILOSEC [Concomitant]
  13. REMERON [Concomitant]
  14. RITALIN [Concomitant]
  15. ZOFRAN [Concomitant]

REACTIONS (6)
  - Platelet count decreased [None]
  - Haemoglobin decreased [None]
  - Pain [None]
  - Weight decreased [None]
  - Fatigue [None]
  - Treatment noncompliance [None]
